FAERS Safety Report 17607434 (Version 1)
Quarter: 2020Q1

REPORT INFORMATION
  Report Type: Spontaneous
  Country: DE (occurrence: DE)
  Receive Date: 20200331
  Receipt Date: 20200331
  Transmission Date: 20200409
  Serious: Yes (Life-Threatening, Hospitalization, Other)
  Sender: FDA-Public Use
  Company Number: DE-PFIZER INC-2020134407

PATIENT
  Age: 69 Year
  Sex: Male
  Weight: 77 kg

DRUGS (13)
  1. AMLODIPINE BESILATE [Suspect]
     Active Substance: AMLODIPINE BESYLATE
     Dosage: 5 MILLIGRAM, Q12H
     Route: 065
     Dates: start: 201808
  2. MILGAMMA PROTEKT [Interacting]
     Active Substance: BENFOTIAMINE
     Indication: CARDIOVASCULAR DISORDER
     Dosage: 300 MILLIGRAM, QD
     Route: 065
     Dates: start: 201808
  3. SIMVASTATIN. [Interacting]
     Active Substance: SIMVASTATIN
     Dosage: 40 MILLIGRAM, QD
     Route: 065
     Dates: start: 201808
  4. PROCORALAN [Suspect]
     Active Substance: IVABRADINE
     Dosage: 7.5 MILLIGRAM, QD
     Route: 065
     Dates: start: 201808
  5. RAMIPRIL. [Interacting]
     Active Substance: RAMIPRIL
     Indication: HYPERTENSION
     Dosage: 5 MILLIGRAM, Q12H
     Route: 065
     Dates: start: 201808
  6. ELIQUIS [Interacting]
     Active Substance: APIXABAN
     Indication: CEREBROVASCULAR ACCIDENT PROPHYLAXIS
     Dosage: 5 MILLIGRAM, BID
     Route: 065
     Dates: start: 201808
  7. CARVEDILOL. [Interacting]
     Active Substance: CARVEDILOL
     Dosage: 25 MILLIGRAM, Q12H
     Route: 065
     Dates: start: 201808
  8. ALLOPURINOL. [Interacting]
     Active Substance: ALLOPURINOL
     Indication: GOUT
     Dosage: 100 MILLIGRAM, QD
     Route: 065
     Dates: start: 201808
  9. AVASTIN [Suspect]
     Active Substance: BEVACIZUMAB
     Indication: DIABETIC RETINAL OEDEMA
     Dosage: UNK
     Route: 065
     Dates: start: 20200115
  10. INSULIN GLARGINE [Interacting]
     Active Substance: INSULIN GLARGINE
     Indication: DIABETES MELLITUS
     Dosage: 15 INTERNATIONAL UNIT, QD
     Route: 065
     Dates: start: 201808
  11. SPIRONOLACTON [Interacting]
     Active Substance: SPIRONOLACTONE
     Dosage: 50 MILLIGRAM, QD
     Route: 065
     Dates: start: 201808
  12. TORASEMID [Interacting]
     Active Substance: TORSEMIDE
     Dosage: 10 MILLIGRAM, QD
     Route: 065
     Dates: start: 201808
  13. JANUMET [Interacting]
     Active Substance: METFORMIN HYDROCHLORIDE\SITAGLIPTIN PHOSPHATE
     Indication: DIABETES MELLITUS
     Dosage: 1 DOSAGE FORM, Q12H
     Route: 065
     Dates: start: 201808

REACTIONS (4)
  - Movement disorder [Recovered/Resolved]
  - Eye movement disorder [Recovered/Resolved]
  - Drug interaction [Unknown]
  - Seizure [Recovered/Resolved]

NARRATIVE: CASE EVENT DATE: 20200115
